FAERS Safety Report 11569765 (Version 1)
Quarter: 2015Q3

REPORT INFORMATION
  Report Type: Spontaneous
  Country: US (occurrence: None)
  Receive Date: 20150928
  Receipt Date: 20150928
  Transmission Date: 20151125
  Serious: Yes (Other)
  Sender: FDA-Public Use
  Company Number: None

PATIENT
  Age: 4 Year
  Sex: Male
  Weight: 19.6 kg

DRUGS (2)
  1. VINCRISTINE HOSPIRA [Suspect]
     Active Substance: VINCRISTINE
     Indication: LEUKAEMIA
     Route: 042
  2. VINCRISTINE [Suspect]
     Active Substance: VINCRISTINE

REACTIONS (2)
  - Secretion discharge [None]
  - Cough [None]

NARRATIVE: CASE EVENT DATE: 20150925
